FAERS Safety Report 8765820 (Version 2)
Quarter: 2012Q4

REPORT INFORMATION
  Report Type: 
  Country: US (occurrence: US)
  Receive Date: 20120903
  Receipt Date: 20121015
  Transmission Date: 20130627
  Serious: No
  Sender: FDA-Public Use
  Company Number: US-PFIZER INC-2012212910

PATIENT
  Age: 36 Year
  Sex: Female
  Weight: 163 kg

DRUGS (3)
  1. NEURONTIN [Suspect]
     Indication: NEURALGIA
     Dosage: 300 mg, 3x/day
     Dates: start: 201202, end: 201203
  2. ALEVE [Concomitant]
     Indication: SPONDYLITIS
     Dosage: UNK,as needed
  3. CYCLOBENZAPRINE [Concomitant]
     Indication: LIMB DISCOMFORT
     Dosage: UNK,as needed

REACTIONS (5)
  - Speech disorder [Recovered/Resolved]
  - Muscle twitching [Recovered/Resolved]
  - Somnolence [Recovered/Resolved]
  - Anger [Recovered/Resolved]
  - Hostility [Recovered/Resolved]
